FAERS Safety Report 4915117-2 (Version None)
Quarter: 2006Q1

REPORT INFORMATION
  Report Type: 
  Country: None (occurrence: None)
  Receive Date: 20060217
  Receipt Date: 20060207
  Transmission Date: 20060701
  Serious: Yes (Other)
  Sender: FDA-Public Use
  Company Number: JP-BRISTOL-MYERS SQUIBB COMPANY-13282579

PATIENT
  Age: 84 Year
  Sex: Female

DRUGS (8)
  1. MEVALOTIN [Suspect]
     Indication: HYPERLIPIDAEMIA
     Route: 048
  2. MARZULENE-S [Concomitant]
     Indication: GASTRITIS
     Route: 048
  3. MIYA-BM [Concomitant]
     Indication: GASTRITIS
     Route: 048
  4. RIZE [Concomitant]
     Indication: GASTRITIS
     Route: 048
  5. BLOPRESS [Concomitant]
     Indication: HYPERTENSION
     Route: 048
     Dates: start: 19991122
  6. CALSLOT [Concomitant]
     Indication: HYPERTENSION
     Route: 048
     Dates: start: 19991108
  7. URINORM [Concomitant]
     Indication: HYPERURICAEMIA
     Route: 048
  8. PARIET [Concomitant]
     Indication: REFLUX OESOPHAGITIS
     Route: 048
     Dates: start: 20031114

REACTIONS (7)
  - ABASIA [None]
  - ABDOMINAL PAIN UPPER [None]
  - DEHYDRATION [None]
  - PHARYNGOLARYNGEAL PAIN [None]
  - PRODUCTIVE COUGH [None]
  - RENAL FAILURE [None]
  - RHABDOMYOLYSIS [None]
